FAERS Safety Report 11823654 (Version 1)
Quarter: 2015Q4

REPORT INFORMATION
  Report Type: Spontaneous
  Country: US (occurrence: US)
  Receive Date: 20151210
  Receipt Date: 20151210
  Transmission Date: 20160305
  Serious: Yes (Hospitalization, Other)
  Sender: FDA-Public Use
  Company Number: US-BAYER-2015-481977

PATIENT
  Age: 37 Year
  Sex: Female

DRUGS (17)
  1. ANTIVERT [Concomitant]
     Active Substance: MECLIZINE HYDROCHLORIDE
  2. SINGULAIR [Concomitant]
     Active Substance: MONTELUKAST SODIUM
  3. YAZ [Suspect]
     Active Substance: DROSPIRENONE\ETHINYL ESTRADIOL
  4. OCELLA [Suspect]
     Active Substance: DROSPIRENONE\ETHINYL ESTRADIOL
  5. ALLEGRA [Concomitant]
     Active Substance: FEXOFENADINE HYDROCHLORIDE
  6. FLORINEF ACETATE [Concomitant]
     Active Substance: FLUDROCORTISONE ACETATE
  7. PREDNISONE. [Concomitant]
     Active Substance: PREDNISONE
  8. VIIBRYD [Concomitant]
     Active Substance: VILAZODONE HYDROCHLORIDE
  9. FISH OIL [Concomitant]
     Active Substance: FISH OIL
  10. PROTONIX [Concomitant]
     Active Substance: PANTOPRAZOLE SODIUM
  11. CYMBALTA [Concomitant]
     Active Substance: DULOXETINE HYDROCHLORIDE
  12. YASMIN [Suspect]
     Active Substance: DROSPIRENONE\ETHINYL ESTRADIOL
  13. ADDERALL [Concomitant]
     Active Substance: AMPHETAMINE ASPARTATE\AMPHETAMINE SULFATE\DEXTROAMPHETAMINE SACCHARATE\DEXTROAMPHETAMINE SULFATE
  14. MIDODRINE [Concomitant]
     Active Substance: MIDODRINE
  15. ACETAMINOPHEN. [Concomitant]
     Active Substance: ACETAMINOPHEN
     Indication: HEADACHE
  16. PLAQUENIL [Concomitant]
     Active Substance: HYDROXYCHLOROQUINE SULFATE
  17. IBUPROFEN. [Concomitant]
     Active Substance: IBUPROFEN
     Indication: HEADACHE

REACTIONS (12)
  - Quadriplegia [None]
  - Pulmonary embolism [None]
  - Autonomic nervous system imbalance [None]
  - Feeling abnormal [None]
  - Paraplegia [None]
  - Cerebrovascular accident [None]
  - Memory impairment [None]
  - Sensorimotor disorder [None]
  - Dysarthria [None]
  - Hemiplegia [None]
  - Transient ischaemic attack [None]
  - Aphasia [None]

NARRATIVE: CASE EVENT DATE: 2008
